FAERS Safety Report 16391230 (Version 1)
Quarter: 2019Q2

REPORT INFORMATION
  Report Type: Spontaneous
  Country: US (occurrence: US)
  Receive Date: 20190604
  Receipt Date: 20190604
  Transmission Date: 20190711
  Serious: Yes (Other)
  Sender: FDA-Public Use
  Company Number: US-BRISTOL-MYERS SQUIBB COMPANY-BMS-2019-052141

PATIENT
  Age: 60 Year
  Sex: Male
  Weight: 93.2 kg

DRUGS (2)
  1. NIVOLUMAB [Suspect]
     Active Substance: NIVOLUMAB
     Indication: PAPILLARY THYROID CANCER
     Dosage: 3 MILLIGRAM/KILOGRAM, Q2WK
     Route: 042
     Dates: start: 20190415
  2. IPILIMUMAB [Suspect]
     Active Substance: IPILIMUMAB
     Indication: PAPILLARY THYROID CANCER
     Dosage: 1 MILLIGRAM/KILOGRAM, Q6WK
     Route: 042
     Dates: start: 20190329

REACTIONS (4)
  - Off label use [Unknown]
  - Pneumonia [Recovering/Resolving]
  - Intentional product use issue [Unknown]
  - Nausea [Unknown]

NARRATIVE: CASE EVENT DATE: 20190522
